FAERS Safety Report 4501249-X (Version None)
Quarter: 2004Q3

REPORT INFORMATION
  Report Type: 
  Country: None (occurrence: None)
  Receive Date: 20040927
  Receipt Date: 20040818
  Transmission Date: 20050211
  Serious: No
  Sender: FDA-Public Use
  Company Number: USA040875880

PATIENT
  Age: 7 Year
  Sex: Male
  Weight: 27 kg

DRUGS (2)
  1. STRATTERA [Suspect]
     Dosage: 60 MG/1 IN THE EVENING
     Dates: start: 20040701
  2. ZYRTEC [Concomitant]

REACTIONS (2)
  - DISTURBANCE IN ATTENTION [None]
  - PRESCRIBED OVERDOSE [None]
